FAERS Safety Report 12215288 (Version 1)
Quarter: 2016Q1

REPORT INFORMATION
  Report Type: Spontaneous
  Country: BG (occurrence: BG)
  Receive Date: 20160328
  Receipt Date: 20160328
  Transmission Date: 20160526
  Serious: Yes (Other)
  Sender: FDA-Public Use
  Company Number: BG-BAUSCH-BL-2016-007310

PATIENT
  Age: 68 Year
  Sex: Female

DRUGS (6)
  1. RITONAVIR. [Suspect]
     Active Substance: RITONAVIR
     Indication: ANTIVIRAL TREATMENT
     Route: 065
     Dates: start: 201501
  2. RIBAVIRIN. [Suspect]
     Active Substance: RIBAVIRIN
     Dosage: DOSE REMAINED THE SAME UNTIL WEEK 12
     Route: 065
  3. RIBAVIRIN. [Suspect]
     Active Substance: RIBAVIRIN
     Indication: ANTIVIRAL TREATMENT
     Route: 065
     Dates: start: 201501
  4. OMBITASVIR [Concomitant]
     Active Substance: OMBITASVIR
     Indication: ANTIVIRAL TREATMENT
     Dates: start: 201501
  5. DASABUVIR [Concomitant]
     Active Substance: DASABUVIR
     Indication: ANTIVIRAL TREATMENT
     Dates: start: 201501
  6. RIBAVIRIN. [Suspect]
     Active Substance: RIBAVIRIN
     Route: 065
     Dates: start: 201501

REACTIONS (3)
  - Condition aggravated [Recovered/Resolved]
  - Hyperbilirubinaemia [Recovered/Resolved]
  - Anaemia [Recovering/Resolving]
